FAERS Safety Report 4521316-4 (Version None)
Quarter: 2004Q4

REPORT INFORMATION
  Report Type: 
  Country: None (occurrence: None)
  Receive Date: 20041208
  Receipt Date: 20041127
  Transmission Date: 20050328
  Serious: Yes (Other)
  Sender: FDA-Public Use
  Company Number: PHNR2004AU01677

PATIENT
  Age: 48 Year
  Sex: Female

DRUGS (2)
  1. FENAC [Concomitant]
  2. COMBIPATCH [Suspect]
     Indication: MENOPAUSAL SYMPTOMS
     Dosage: 50/140 UG
     Route: 062
     Dates: start: 20041125, end: 20041126

REACTIONS (4)
  - AGGRESSION [None]
  - CONFUSIONAL STATE [None]
  - NAUSEA [None]
  - TREMOR [None]
